FAERS Safety Report 6538288-3 (Version None)
Quarter: 2010Q1

REPORT INFORMATION
  Report Type: 
  Country: None (occurrence: None)
  Receive Date: 20100114
  Receipt Date: 20100111
  Transmission Date: 20100710
  Serious: Yes (Life-Threatening)
  Sender: FDA-Public Use
  Company Number: SE-B.I. PHARMACEUTICALS,INC./RIDGEFIELD-2010-SW-00006SW

PATIENT
  Age: 63 Year
  Sex: Female

DRUGS (9)
  1. SIFROL TAB. 0.18 MG [Suspect]
     Dosage: 2.5 MG
     Route: 048
     Dates: start: 20090910, end: 20090910
  2. LITHIONIT [Concomitant]
  3. ATARAX [Concomitant]
  4. OMEPRAZOL ABCUR [Concomitant]
  5. LEVOTHYROXINE SODIUM [Concomitant]
  6. ALIMEMAZIN [Concomitant]
  7. ACETAMINOPHEN [Concomitant]
  8. NAPROXEN BMM PHARMA [Concomitant]
  9. GLYTRIN [Concomitant]

REACTIONS (2)
  - FATIGUE [None]
  - NAUSEA [None]
